FAERS Safety Report 7035344 (Version 2)
Quarter: 2013Q4

REPORT INFORMATION
  Report Type: Spontaneous
  Country: US (occurrence: None)
  Receive Date: 20090617
  Receipt Date: 20131011
  Transmission Date: 20140711
  Serious: Yes (Other)
  Sender: FDA-Public Use
  Company Number: 2009S1004569

PATIENT
  Age: 77 Year
  Sex: Male

DRUGS (5)
  1. FLEET PHOSPHO-SODA [Suspect]
     Indication: COLONOSCOPY
     Dosage: PO
     Route: 048
     Dates: start: 20070103, end: 20070103
  2. FLEET PHOSPHO-SODA [Suspect]
     Dosage: PO
     Route: 048
     Dates: start: 20070103, end: 20070103
  3. BENICAR/HCT [Concomitant]
  4. PRILOSEC (OMEPRAZOLE) [Concomitant]
  5. CYMBALTA (DULOXETINE HYDROCHLORIDE) [Concomitant]

REACTIONS (2)
  - Renal failure chronic [None]
  - Anaemia [None]
